FAERS Safety Report 7867103-0 (Version None)
Quarter: 2011Q4

REPORT INFORMATION
  Report Type: 
  Country: None (occurrence: None)
  Receive Date: 20111028
  Receipt Date: 20111025
  Transmission Date: 20120403
  Serious: Yes (Death, Life-Threatening)
  Sender: FDA-Public Use
  Company Number: JP-JNJFOC-20100708882

PATIENT
  Sex: Female
  Weight: 53 kg

DRUGS (8)
  1. ALDACTONE [Concomitant]
     Indication: ASCITES
     Route: 048
  2. DOXIL [Suspect]
     Indication: OVARIAN CANCER
     Dosage: CYCLE 1
     Route: 042
     Dates: start: 20100629, end: 20100629
  3. LASIX [Concomitant]
     Indication: ASCITES
     Route: 048
  4. ETODOLAC [Concomitant]
     Indication: CANCER PAIN
     Route: 048
  5. MAGMITT [Concomitant]
     Indication: CONSTIPATION
     Route: 048
  6. PURSENNID [Concomitant]
     Indication: CONSTIPATION
     Route: 048
  7. BETAMETHASONE [Concomitant]
     Indication: CACHEXIA
     Route: 048
  8. DOXIL [Suspect]
     Indication: MALIGNANT ASCITES
     Dosage: CYCLE 1
     Route: 042
     Dates: start: 20100629, end: 20100629

REACTIONS (2)
  - OVARIAN CANCER [None]
  - INTERSTITIAL LUNG DISEASE [None]
